FAERS Safety Report 5817579-5 (Version None)
Quarter: 2008Q3

REPORT INFORMATION
  Report Type: 
  Country: None (occurrence: None)
  Receive Date: 20080722
  Receipt Date: 20080714
  Transmission Date: 20090109
  Serious: Yes (Other)
  Sender: FDA-Public Use
  Company Number: US-GENENTECH-251903

PATIENT
  Sex: Female

DRUGS (1)
  1. XOLAIR [Suspect]
     Indication: ASTHMA
     Dosage: UNK
     Route: 065
     Dates: start: 20061101

REACTIONS (4)
  - ASTHENIA [None]
  - CHEST PAIN [None]
  - DYSPNOEA [None]
  - RASH [None]
